FAERS Safety Report 21670248 (Version 2)
Quarter: 2022Q4

REPORT INFORMATION
  Report Type: Report from Study
  Country: US (occurrence: US)
  Receive Date: 20221201
  Receipt Date: 20221215
  Transmission Date: 20230112
  Serious: Yes (Hospitalization, Other)
  Sender: FDA-Public Use
  Company Number: US-ACADIA PHARMACEUTICALS INC.-ACA-2022-PIM-004092

PATIENT
  Age: 66 Year
  Sex: Female

DRUGS (14)
  1. NUPLAZID [Suspect]
     Active Substance: PIMAVANSERIN TARTRATE
     Indication: Parkinson^s disease
     Dosage: 34 MILLIGRAM, QD
     Route: 048
     Dates: start: 20221115
  2. CLONAZEPAM [Concomitant]
     Active Substance: CLONAZEPAM
  3. NOURIANZ [Concomitant]
     Active Substance: ISTRADEFYLLINE
  4. QUETIAPINE [Concomitant]
     Active Substance: QUETIAPINE
  5. DOCUSATE [Concomitant]
     Active Substance: DOCUSATE
  6. PREGABALIN [Concomitant]
     Active Substance: PREGABALIN
  7. AMANTADINE [Concomitant]
     Active Substance: AMANTADINE
  8. ESOMEPRAZOLE [Concomitant]
     Active Substance: ESOMEPRAZOLE
  9. DULOXETINE [Concomitant]
     Active Substance: DULOXETINE
  10. LEVOTHYROXINE [Concomitant]
     Active Substance: LEVOTHYROXINE
  11. NEUPRO [Concomitant]
     Active Substance: ROTIGOTINE
  12. TIZANIDINE [Concomitant]
     Active Substance: TIZANIDINE
  13. SINEMET [Concomitant]
     Active Substance: CARBIDOPA\LEVODOPA
  14. CELECOXIB [Concomitant]
     Active Substance: CELECOXIB

REACTIONS (1)
  - Cerebrovascular accident [Not Recovered/Not Resolved]

NARRATIVE: CASE EVENT DATE: 20221123
